FAERS Safety Report 13669511 (Version 2)
Quarter: 2023Q4

REPORT INFORMATION
  Report Type: Spontaneous
  Country: US (occurrence: US)
  Receive Date: 20170620
  Receipt Date: 20231113
  Transmission Date: 20240110
  Serious: Yes (Hospitalization, Other)
  Sender: FDA-Public Use
  Company Number: US-VERTEX PHARMACEUTICALS-2017-003182

PATIENT
  Age: 17 Year
  Sex: Female

DRUGS (3)
  1. ORKAMBI [Interacting]
     Active Substance: IVACAFTOR\LUMACAFTOR
     Indication: Cystic fibrosis
     Dosage: LUMACAFTOR/IVACFTOR
     Route: 048
  2. ORKAMBI [Interacting]
     Active Substance: IVACAFTOR\LUMACAFTOR
     Dosage: LUMACAFTOR/IVACFTOR (RESTARTED)
     Route: 048
  3. ESCITALOPRAM [Interacting]
     Active Substance: ESCITALOPRAM OXALATE
     Indication: Mood altered
     Dosage: 10 MG, UNK
     Route: 065

REACTIONS (3)
  - Suicide attempt [Unknown]
  - Depression [Unknown]
  - Mood altered [Unknown]
